FAERS Safety Report 8427804-2 (Version None)
Quarter: 2012Q2

REPORT INFORMATION
  Report Type: 
  Country: None (occurrence: None)
  Receive Date: 20120611
  Receipt Date: 20120607
  Transmission Date: 20120825
  Serious: Yes (Hospitalization)
  Sender: FDA-Public Use
  Company Number: US-PFIZER INC-2012124739

PATIENT
  Sex: Male
  Weight: 80.726 kg

DRUGS (2)
  1. LIPITOR [Suspect]
     Dosage: 20 MG, DAILY
     Dates: start: 20120501
  2. CADUET [Suspect]
     Dosage: UNK

REACTIONS (3)
  - GASTROINTESTINAL INFECTION [None]
  - PNEUMONIA [None]
  - ABDOMINAL DISCOMFORT [None]
